FAERS Safety Report 10945890 (Version 1)
Quarter: 2015Q1

REPORT INFORMATION
  Report Type: Spontaneous
  Country: US (occurrence: US)
  Receive Date: 20150323
  Receipt Date: 20150323
  Transmission Date: 20150721
  Serious: Yes (Hospitalization)
  Sender: FDA-Public Use
  Company Number: US-PFIZER INC-2015097854

PATIENT
  Age: 55 Year
  Sex: Female
  Weight: 44 kg

DRUGS (4)
  1. XANAX [Suspect]
     Active Substance: ALPRAZOLAM
     Indication: ANXIETY
     Dosage: 0.375 MG (ONE AND A HALF OF 0.25 MG OF XANAX EVERY 5 HOURS)
     Dates: start: 2007
  2. XANAX [Suspect]
     Active Substance: ALPRAZOLAM
     Dosage: UNK EVERY 5 HOUR 10 MINUTES
  3. XANAX [Suspect]
     Active Substance: ALPRAZOLAM
     Dosage: UNK EVERY 6 HOURS
  4. XANAX [Suspect]
     Active Substance: ALPRAZOLAM
     Dosage: UNK EVERY 5 HOURS 15 MINUTES

REACTIONS (10)
  - Drug ineffective [Unknown]
  - Dry mouth [Unknown]
  - Muscle twitching [Unknown]
  - Vision blurred [Unknown]
  - Abdominal discomfort [Unknown]
  - Weight decreased [Unknown]
  - Malaise [Unknown]
  - Paraesthesia [Unknown]
  - Drug intolerance [Unknown]
  - Withdrawal syndrome [Unknown]
